FAERS Safety Report 4824560-1 (Version None)
Quarter: 2005Q4

REPORT INFORMATION
  Report Type: 
  Country: None (occurrence: None)
  Receive Date: 20051108
  Receipt Date: 20051125
  Transmission Date: 20060501
  Serious: Yes (Other)
  Sender: FDA-Public Use
  Company Number: EWC051046817

PATIENT
  Age: 56 Year
  Sex: Female

DRUGS (4)
  1. EVISTA [Suspect]
     Indication: OSTEOPOROSIS
     Dosage: 60 MG/1 DAY
     Dates: start: 20050901, end: 20051004
  2. KETEK [Concomitant]
  3. FELDENE [Concomitant]
  4. CALCIUM GLUCONATE [Concomitant]

REACTIONS (1)
  - HEPATITIS TOXIC [None]
